FAERS Safety Report 21244873 (Version 1)
Quarter: 2022Q3

REPORT INFORMATION
  Report Type: Spontaneous
  Country: US (occurrence: None)
  Receive Date: 20220822
  Receipt Date: 20220822
  Transmission Date: 20221027
  Serious: Yes (Other)
  Sender: FDA-Public Use
  Company Number: None

PATIENT
  Sex: Female
  Weight: 60.78 kg

DRUGS (13)
  1. TIXAGEVIMAB [Suspect]
     Active Substance: TIXAGEVIMAB
     Dosage: FREQUENCY : ONCE;?
     Dates: start: 20220318
  2. CILGAVIMAB [Suspect]
     Active Substance: CILGAVIMAB
  3. AMLODIPINE [Concomitant]
     Active Substance: AMLODIPINE BESYLATE
  4. ASPIRIN [Concomitant]
     Active Substance: ASPIRIN
  5. CRESTOR [Concomitant]
     Active Substance: ROSUVASTATIN CALCIUM
  6. ELIQUIS [Concomitant]
     Active Substance: APIXABAN
  7. FOSAMAX [Concomitant]
     Active Substance: ALENDRONATE SODIUM
  8. LOSARTAN [Concomitant]
     Active Substance: LOSARTAN
  9. METOPROLOL SUCCINATE [Concomitant]
  10. PREDNISONE [Concomitant]
     Active Substance: PREDNISONE
  11. TYLENOL [Concomitant]
     Active Substance: ACETAMINOPHEN
  12. VITAMIN B12 [Suspect]
     Active Substance: CYANOCOBALAMIN
  13. VITAMIN D3 [Concomitant]
     Active Substance: CHOLECALCIFEROL
     Dosage: FREQUENCY : DAILY;?

REACTIONS (1)
  - Atrial fibrillation [None]
